FAERS Safety Report 9745609 (Version 1)
Quarter: 2013Q4

REPORT INFORMATION
  Report Type: Spontaneous
  Country: US (occurrence: US)
  Receive Date: 20131211
  Receipt Date: 20131211
  Transmission Date: 20140711
  Serious: Yes (Other)
  Sender: FDA-Public Use
  Company Number: US-GE HEALTHCARE MEDICAL DIAGNOSTICS-OMPQ-PR-1312S-1385

PATIENT
  Age: 39 Year
  Sex: Male

DRUGS (3)
  1. OMNIPAQUE [Suspect]
     Indication: CHEST PAIN
     Route: 042
     Dates: start: 20131203, end: 20131203
  2. OMNIPAQUE [Suspect]
     Indication: DYSPNOEA
  3. OMNIPAQUE [Suspect]
     Indication: DIAGNOSTIC PROCEDURE

REACTIONS (3)
  - Urticaria [Recovered/Resolved]
  - Nasal congestion [Recovered/Resolved]
  - Face oedema [Recovered/Resolved]
